FAERS Safety Report 6449850-0 (Version None)
Quarter: 2009Q4

REPORT INFORMATION
  Report Type: 
  Country: None (occurrence: None)
  Receive Date: 20091121
  Receipt Date: 20091102
  Transmission Date: 20100525
  Serious: Yes (Death, Other)
  Sender: FDA-Public Use
  Company Number: GB-SANOFI-AVENTIS-200920822GDDC

PATIENT
  Sex: Female
  Weight: 59.2 kg

DRUGS (8)
  1. DOCETAXEL [Suspect]
     Dosage: DOSE AS USED: UNKNOWN
     Route: 041
     Dates: start: 20091021, end: 20091021
  2. DOCETAXEL [Suspect]
     Dosage: DOSE AS USED: UNKNOWN
     Route: 041
     Dates: start: 20091021, end: 20091021
  3. DOCETAXEL [Suspect]
     Dosage: DOSE AS USED: UNKNOWN
     Route: 041
     Dates: start: 20091021, end: 20091021
  4. DOCETAXEL [Suspect]
     Dosage: DOSE AS USED: UNKNOWN
     Route: 041
     Dates: start: 20091021, end: 20091021
  5. DOCETAXEL [Suspect]
     Route: 041
     Dates: start: 20090930, end: 20090930
  6. DOCETAXEL [Suspect]
     Route: 041
     Dates: start: 20090930, end: 20090930
  7. DEXAMETHASONE [Concomitant]
     Indication: PREMEDICATION
     Route: 048
     Dates: start: 20091020, end: 20091021
  8. ONDANSETRON [Concomitant]
     Route: 048
     Dates: start: 20091021, end: 20091021

REACTIONS (6)
  - ANAPHYLACTIC REACTION [None]
  - CIRCULATORY COLLAPSE [None]
  - FLUSHING [None]
  - HYPERTENSION [None]
  - RESTLESSNESS [None]
  - TACHYCARDIA [None]
